FAERS Safety Report 12292761 (Version 1)
Quarter: 2016Q2

REPORT INFORMATION
  Report Type: Report from Study
  Country: US (occurrence: US)
  Receive Date: 20160421
  Receipt Date: 20160421
  Transmission Date: 20160815
  Serious: No
  Sender: FDA-Public Use
  Company Number: US-AMGEN-USASL2016015091

PATIENT
  Age: 53 Year
  Sex: Female

DRUGS (1)
  1. REPATHA [Suspect]
     Active Substance: EVOLOCUMAB
     Indication: TYPE IIA HYPERLIPIDAEMIA
     Dosage: 140 MG, Q2WK
     Route: 065

REACTIONS (8)
  - Tongue disorder [Unknown]
  - Glossodynia [Recovered/Resolved]
  - Injection site pain [Unknown]
  - Nasopharyngitis [Unknown]
  - Hypoaesthesia oral [Recovered/Resolved]
  - Speech disorder [Recovered/Resolved]
  - Back pain [Unknown]
  - Head discomfort [Unknown]
